FAERS Safety Report 10438826 (Version 1)
Quarter: 2014Q3

REPORT INFORMATION
  Report Type: Spontaneous
  Country: IT (occurrence: IT)
  Receive Date: 20140908
  Receipt Date: 20140908
  Transmission Date: 20150326
  Serious: Yes (Hospitalization)
  Sender: FDA-Public Use
  Company Number: PHHY2014IT110367

PATIENT
  Sex: Female

DRUGS (3)
  1. LORAZEPAM. [Suspect]
     Active Substance: LORAZEPAM
     Indication: DRUG ABUSE
     Dosage: 50 MG, ONCE/SINGLE
     Route: 048
     Dates: start: 20140823, end: 20140823
  2. BROTIZOLAM [Suspect]
     Active Substance: BROTIZOLAM
     Indication: DRUG ABUSE
     Dosage: 5 MG, ONCE/SINGLE
     Route: 048
     Dates: start: 20140823, end: 20140823
  3. DELORAZEPAM [Suspect]
     Active Substance: DELORAZEPAM
     Indication: DRUG ABUSE
     Dosage: 1 MG, ONCE/SINGLE
     Route: 042
     Dates: start: 20140823, end: 20140823

REACTIONS (2)
  - Bradykinesia [Recovering/Resolving]
  - Drug abuse [Recovering/Resolving]

NARRATIVE: CASE EVENT DATE: 20140823
